FAERS Safety Report 7984265-5 (Version None)
Quarter: 2011Q4

REPORT INFORMATION
  Report Type: 
  Country: None (occurrence: None)
  Receive Date: 20111216
  Receipt Date: 20111205
  Transmission Date: 20120403
  Serious: Yes (Other)
  Sender: FDA-Public Use
  Company Number: US-JNJFOC-20111202345

PATIENT
  Sex: Male
  Weight: 96.16 kg

DRUGS (2)
  1. REMICADE [Suspect]
     Indication: CROHN'S DISEASE
     Route: 042
     Dates: start: 20101101
  2. PANTOPRAZOLE [Concomitant]
     Indication: GASTROOESOPHAGEAL REFLUX DISEASE
     Route: 065

REACTIONS (9)
  - BLOOD PRESSURE INCREASED [None]
  - NASOPHARYNGITIS [None]
  - ANXIETY [None]
  - RESPIRATORY DISORDER [None]
  - RASH [None]
  - DEPRESSION [None]
  - LUPUS-LIKE SYNDROME [None]
  - MALAISE [None]
  - ABDOMINAL PAIN UPPER [None]
